FAERS Safety Report 5836004-1 (Version None)
Quarter: 2008Q3

REPORT INFORMATION
  Report Type: 
  Country: None (occurrence: None)
  Receive Date: 20080805
  Receipt Date: 20080725
  Transmission Date: 20090109
  Serious: Yes (Hospitalization)
  Sender: FDA-Public Use
  Company Number: GXKR2008GB07012

PATIENT
  Sex: Female

DRUGS (3)
  1. PREDNISOLONE [Suspect]
     Indication: EVANS SYNDROME
  2. IMMUNE GLOBULIN (HUMAN) [Suspect]
     Dosage: INTRAVENOUS
     Route: 042
  3. RITUXIMAB (RITUXIMAB) [Suspect]
     Indication: EVANS SYNDROME

REACTIONS (13)
  - ANOREXIA [None]
  - CARDIAC MURMUR [None]
  - CARDIOMEGALY [None]
  - COUGH [None]
  - DILATATION VENTRICULAR [None]
  - FATIGUE [None]
  - PLEURAL EFFUSION [None]
  - PULMONARY HYPERTENSION [None]
  - PULMONARY OEDEMA [None]
  - RIGHT ATRIAL HYPERTROPHY [None]
  - RIGHT VENTRICULAR HYPERTROPHY [None]
  - TRICUSPID VALVE INCOMPETENCE [None]
  - VENOUS PRESSURE JUGULAR INCREASED [None]
